FAERS Safety Report 17618858 (Version 2)
Quarter: 2020Q2

REPORT INFORMATION
  Report Type: Spontaneous
  Country: BR (occurrence: BR)
  Receive Date: 20200403
  Receipt Date: 20200403
  Transmission Date: 20200713
  Serious: Yes (Other)
  Sender: FDA-Public Use
  Company Number: BR-ABBVIE-20K-020-3345908-00

PATIENT
  Age: 54 Year
  Sex: Male
  Weight: 100 kg

DRUGS (3)
  1. HUMIRA [Suspect]
     Active Substance: ADALIMUMAB
     Indication: PSORIASIS
     Dosage: LOADING DOSE - WEEK 0
     Route: 058
     Dates: start: 2016, end: 2016
  2. HUMIRA [Suspect]
     Active Substance: ADALIMUMAB
     Dosage: LOADING DOSE - WEEK 2
     Route: 058
     Dates: start: 2016, end: 2016
  3. HUMIRA [Suspect]
     Active Substance: ADALIMUMAB
     Route: 058
     Dates: end: 20200307

REACTIONS (13)
  - Hypertension [Recovered/Resolved]
  - Psoriasis [Not Recovered/Not Resolved]
  - Arthralgia [Not Recovered/Not Resolved]
  - Psoriasis [Unknown]
  - Glucose tolerance impaired [Unknown]
  - Psoriasis [Not Recovered/Not Resolved]
  - Deafness [Recovering/Resolving]
  - Tinnitus [Unknown]
  - Psoriasis [Not Recovered/Not Resolved]
  - Arthralgia [Recovered/Resolved]
  - Chills [Unknown]
  - Diarrhoea [Unknown]
  - Dizziness [Unknown]

NARRATIVE: CASE EVENT DATE: 2016
